FAERS Safety Report 19694163 (Version 2)
Quarter: 2021Q3

REPORT INFORMATION
  Report Type: Spontaneous
  Country: US (occurrence: US)
  Receive Date: 20210813
  Receipt Date: 20210908
  Transmission Date: 20211014
  Serious: No
  Sender: FDA-Public Use
  Company Number: US-LUPIN PHARMACEUTICALS INC.-2021-14343

PATIENT

DRUGS (1)
  1. ALBUTEROL SULFATE INHALATION AEROSOL, 90 MCG/ACTUATION [Suspect]
     Active Substance: ALBUTEROL SULFATE
     Indication: ASTHMA
     Dosage: UNK, QID (2 PUFFS EVERY 6 HOURS)
     Dates: start: 20210727

REACTIONS (2)
  - Asthma [Unknown]
  - Device malfunction [Unknown]

NARRATIVE: CASE EVENT DATE: 202107
